FAERS Safety Report 9948015 (Version 1)
Quarter: 2014Q1

REPORT INFORMATION
  Report Type: Report from Study
  Country: US (occurrence: US)
  Receive Date: 20140303
  Receipt Date: 20140303
  Transmission Date: 20141002
  Serious: No
  Sender: FDA-Public Use
  Company Number: US-ABBVIE-13P-163-1059017-00

PATIENT
  Age: 56 Year
  Sex: Male

DRUGS (4)
  1. HUMIRA [Suspect]
     Indication: CROHN^S DISEASE
     Dates: end: 201301
  2. HUMIRA [Suspect]
     Dates: start: 201301
  3. AZATHIOPRINE [Concomitant]
     Indication: PRODUCT USED FOR UNKNOWN INDICATION
  4. AMBIEN GENERIC [Concomitant]
     Indication: INSOMNIA
     Dosage: 10MG, HALF A TABLET, AS NEEDED

REACTIONS (1)
  - Injection site bruising [Unknown]
